FAERS Safety Report 7121200-6 (Version None)
Quarter: 2010Q4

REPORT INFORMATION
  Report Type: 
  Country: None (occurrence: None)
  Receive Date: 20101124
  Receipt Date: 20101117
  Transmission Date: 20110411
  Serious: Yes (Death)
  Sender: FDA-Public Use
  Company Number: PHHY2009US66538

PATIENT
  Sex: Male
  Weight: 96 kg

DRUGS (7)
  1. EXJADE [Suspect]
     Indication: HAEMOCHROMATOSIS
     Dosage: 500 MG, QD
     Route: 048
     Dates: start: 20090219, end: 20090316
  2. NEUPOGEN [Concomitant]
     Indication: NEUTROPENIA
     Dosage: 480 MCQ
     Route: 058
  3. PROCRIT [Concomitant]
     Indication: ANAEMIA
     Dosage: 3 X A WEEK
     Route: 058
  4. FAMVIR [Concomitant]
     Indication: PROPHYLAXIS
     Dosage: DAILY
     Route: 048
  5. VFEND [Concomitant]
     Indication: PROPHYLAXIS
     Dosage: DAILY
     Route: 048
  6. TACROLIMUS [Concomitant]
     Indication: GRAFT VERSUS HOST DISEASE
     Dosage: DAILY
  7. CELLCEPT [Concomitant]
     Indication: GRAFT VERSUS HOST DISEASE
     Route: 048

REACTIONS (1)
  - CHRONIC GRAFT VERSUS HOST DISEASE [None]
